FAERS Safety Report 6217479-5 (Version None)
Quarter: 2009Q2

REPORT INFORMATION
  Report Type: 
  Country: None (occurrence: None)
  Receive Date: 20090608
  Receipt Date: 20081117
  Transmission Date: 20091009
  Serious: No
  Sender: FDA-Public Use
  Company Number: A0757051A

PATIENT
  Age: 41 Year
  Sex: Female

DRUGS (9)
  1. BUPROPION HYDROCHLORIDE [Suspect]
     Indication: DEPRESSION
     Dosage: 150MG THREE TIMES PER DAY
     Route: 048
     Dates: start: 20080303
  2. WELLBUTRIN SR [Suspect]
     Indication: DEPRESSION
     Route: 048
     Dates: start: 20040401, end: 20050301
  3. ZOLOFT [Concomitant]
  4. LEVOXYL [Concomitant]
  5. PROVENTIL-HFA [Concomitant]
  6. ADVAIR HFA [Concomitant]
  7. CLARITIN [Concomitant]
  8. NICOTINAMIDE [Concomitant]
  9. AMBIEN [Concomitant]

REACTIONS (3)
  - DRUG INEFFECTIVE [None]
  - MEDICATION ERROR [None]
  - MUSCLE TWITCHING [None]
